FAERS Safety Report 4304352-2 (Version None)
Quarter: 2004Q1

REPORT INFORMATION
  Report Type: 
  Country: None (occurrence: None)
  Receive Date: 20040224
  Receipt Date: 20040210
  Transmission Date: 20041129
  Serious: Yes (Other)
  Sender: FDA-Public Use
  Company Number: US066338

PATIENT
  Age: 42 Year
  Sex: Female

DRUGS (2)
  1. ENBREL [Suspect]
     Indication: RHEUMATOID ARTHRITIS
     Dosage: 25 MG, 2 IN 1 WEEKS, SC
     Route: 058
     Dates: start: 19991001
  2. GOLD [Concomitant]

REACTIONS (7)
  - DYSPNOEA [None]
  - INJECTION SITE INDURATION [None]
  - INJECTION SITE OEDEMA [None]
  - INJECTION SITE REACTION [None]
  - LATEX ALLERGY [None]
  - RHEUMATOID ARTHRITIS [None]
  - SWELLING FACE [None]
